FAERS Safety Report 9529147 (Version 1)
Quarter: 2013Q1

REPORT INFORMATION
  Report Type: Spontaneous
  Country: US (occurrence: None)
  Receive Date: 20130318
  Receipt Date: 20130318
  Transmission Date: 20140127
  Serious: Yes (Other)
  Sender: FDA-Public Use
  Company Number: 163-21660-12042451

PATIENT
  Sex: 0

DRUGS (3)
  1. ABRAXANE [Suspect]
     Indication: METASTATIC MALIGNANT MELANOMA
     Route: 042
  2. OBLIMERSEN [Suspect]
     Indication: METASTATIC MALIGNANT MELANOMA
     Dosage: 7 MG/KG, DAILY ON DAYS 1-7 AND 22-28 IV
  3. TEMOZOLOMIDE [Suspect]
     Indication: METASTATIC MALIGNANT MELANOMA
     Dosage: 75/M2, DAILY ON DAYS 1-42,

REACTIONS (4)
  - Leukopenia [None]
  - Neutropenia [None]
  - Thrombocytopenia [None]
  - Peripheral sensory neuropathy [None]
